FAERS Safety Report 15329630 (Version 2)
Quarter: 2018Q4

REPORT INFORMATION
  Report Type: Spontaneous
  Country: US (occurrence: US)
  Receive Date: 20180829
  Receipt Date: 20181010
  Transmission Date: 20190204
  Serious: Yes (Other)
  Sender: FDA-Public Use
  Company Number: US-PFIZER INC-2018345705

PATIENT
  Age: 47 Year
  Sex: Male

DRUGS (3)
  1. SILDENAFIL CITRATE. [Suspect]
     Active Substance: SILDENAFIL CITRATE
     Dosage: 20 MG TABLET 1 TO 3 TAB ONE HOUR PRIOR TO INTERCOURSE
     Route: 048
  2. ATORVASTATIN CALCIUM. [Suspect]
     Active Substance: ATORVASTATIN CALCIUM
     Dosage: 40 MG, DAILY
     Route: 048
  3. LYRICA [Suspect]
     Active Substance: PREGABALIN
     Dosage: 25 MG, 2X/DAY
     Route: 048

REACTIONS (31)
  - Arthralgia [Unknown]
  - Diarrhoea [Unknown]
  - Fatigue [Unknown]
  - Gastrooesophageal reflux disease [Unknown]
  - Abdominal pain [Unknown]
  - Colitis [Unknown]
  - Adjustment disorder with mixed anxiety and depressed mood [Unknown]
  - Essential hypertension [Unknown]
  - Palpitations [Unknown]
  - Bronchospasm [Unknown]
  - Nasopharyngitis [Unknown]
  - Dysphagia [Unknown]
  - Musculoskeletal disorder [Unknown]
  - Anxiety disorder [Unknown]
  - Somatic dysfunction [Unknown]
  - Back pain [Unknown]
  - Organic erectile dysfunction [Unknown]
  - Panic attack [Unknown]
  - Melaena [Unknown]
  - Bladder outlet obstruction [Unknown]
  - Arteriosclerosis coronary artery [Unknown]
  - Nephrolithiasis [Unknown]
  - Joint dislocation [Unknown]
  - Attention deficit/hyperactivity disorder [Unknown]
  - Nausea [Unknown]
  - Joint injury [Unknown]
  - Transaminases increased [Unknown]
  - Blood test abnormal [Unknown]
  - Hypomagnesaemia [Unknown]
  - Vomiting [Unknown]
  - Post herpetic neuralgia [Unknown]
